FAERS Safety Report 10713642 (Version 1)
Quarter: 2015Q1

REPORT INFORMATION
  Report Type: Spontaneous
  Country: US (occurrence: US)
  Receive Date: 20150115
  Receipt Date: 20150115
  Transmission Date: 20150721
  Serious: Yes (Death)
  Sender: FDA-Public Use
  Company Number: US-BAYER-2015-005111

PATIENT
  Age: 50 Year
  Sex: Male

DRUGS (5)
  1. SERTRALINE [Suspect]
     Active Substance: SERTRALINE HYDROCHLORIDE
  2. MORPHINE [Suspect]
     Active Substance: MORPHINE
  3. TRAMADOL [Suspect]
     Active Substance: TRAMADOL
  4. DIAZEPAM. [Suspect]
     Active Substance: DIAZEPAM
  5. DIPHENHYDRAMINE HYDROCHLORIDE. [Suspect]
     Active Substance: DIPHENHYDRAMINE HYDROCHLORIDE

REACTIONS (1)
  - Drug abuse [Fatal]
